FAERS Safety Report 5159688-2 (Version None)
Quarter: 2006Q4

REPORT INFORMATION
  Report Type: 
  Country: None (occurrence: None)
  Receive Date: 20061129
  Receipt Date: 20061121
  Transmission Date: 20070319
  Serious: Yes (Other)
  Sender: FDA-Public Use
  Company Number: DE-JNJFOC-20061104904

PATIENT
  Age: 66 Year
  Sex: Female

DRUGS (6)
  1. RISPERDAL [Suspect]
     Indication: SCHIZOAFFECTIVE DISORDER
     Route: 048
     Dates: start: 20030101
  2. MIRTAZAPINE [Concomitant]
  3. VENLAFAXINE HCL [Concomitant]
  4. ASPIRIN [Concomitant]
  5. ANTI HYPERTONIC AGENT [Concomitant]
  6. LIPID DECREASING AGENT [Concomitant]

REACTIONS (2)
  - CEREBROVASCULAR ACCIDENT [None]
  - THROMBOCYTHAEMIA [None]
